FAERS Safety Report 24685843 (Version 1)
Quarter: 2024Q4

REPORT INFORMATION
  Report Type: Report from Study
  Country: US (occurrence: US)
  Receive Date: 20241202
  Receipt Date: 20241202
  Transmission Date: 20250114
  Serious: No
  Sender: BLUEBIRD BIO
  Company Number: US-BLUEBIRD BIO-US-BBB-24-00059

PATIENT
  Age: 9 Year
  Sex: Male

DRUGS (2)
  1. ZYNTEGLO [Suspect]
     Active Substance: BETIBEGLOGENE AUTOTEMCEL
     Indication: Thalassaemia beta
     Dosage: 6.5X 10^6 CD34+ CELLS/KG
     Route: 042
  2. BUSULFAN [Concomitant]
     Active Substance: BUSULFAN
     Indication: Bone marrow conditioning regimen
     Dosage: UNK, QD
     Route: 065

REACTIONS (3)
  - Contusion [Recovered/Resolved]
  - Epistaxis [Recovered/Resolved]
  - Venoocclusive disease [Recovered/Resolved]
